FAERS Safety Report 15976154 (Version 2)
Quarter: 2019Q1

REPORT INFORMATION
  Report Type: Spontaneous
  Country: US (occurrence: US)
  Receive Date: 20190218
  Receipt Date: 20190221
  Transmission Date: 20190418
  Serious: No
  Sender: FDA-Public Use
  Company Number: US-PFIZER INC-2019070812

PATIENT
  Age: 72 Year
  Sex: Female

DRUGS (6)
  1. MACRODANTIN [Suspect]
     Active Substance: NITROFURANTOIN
     Dosage: UNK
  2. DICHLORODIFLUOROMETHANE. [Suspect]
     Active Substance: DICHLORODIFLUOROMETHANE
     Dosage: UNK
     Route: 061
  3. THIMEROSAL [Suspect]
     Active Substance: THIMEROSAL
     Dosage: UNK
     Route: 061
  4. CIPROFLOXACIN. [Suspect]
     Active Substance: CIPROFLOXACIN
     Dosage: UNK
  5. TRICHLOROFLUOROMETHANE [Suspect]
     Active Substance: TRICHLOROMONOFLUOROMETHANE
     Dosage: UNK
  6. TRIMPEX TRIMETHOPRIM HYDROCHLORIDE [Suspect]
     Active Substance: TRIMETHOPRIM HYDROCHLORIDE
     Dosage: UNK

REACTIONS (2)
  - Drug hypersensitivity [None]
  - Drug hypersensitivity [Unknown]
